FAERS Safety Report 13289319 (Version 5)
Quarter: 2017Q4

REPORT INFORMATION
  Report Type: Spontaneous
  Country: FR (occurrence: FR)
  Receive Date: 20170302
  Receipt Date: 20171018
  Transmission Date: 20180320
  Serious: Yes (Hospitalization, Disabling, Other)
  Sender: FDA-Public Use
  Company Number: FR-BRISTOL-MYERS SQUIBB COMPANY-BMS-2017-016513

PATIENT
  Age: 78 Year
  Sex: Male
  Weight: 98 kg

DRUGS (3)
  1. OPDIVO [Suspect]
     Active Substance: NIVOLUMAB
     Indication: PRODUCT USED FOR UNKNOWN INDICATION
     Dosage: 294 MG, UNK
     Route: 042
     Dates: start: 20170106, end: 20170120
  2. KARDEGIC [Concomitant]
     Active Substance: ASPIRIN DL-LYSINE
     Indication: PRODUCT USED FOR UNKNOWN INDICATION
     Dosage: 1 TAB, QD
     Route: 065
  3. OPDIVO [Suspect]
     Active Substance: NIVOLUMAB
     Indication: LUNG NEOPLASM
     Dosage: 3 MG/KG, UNK
     Route: 065
     Dates: start: 201701

REACTIONS (4)
  - Peripheral sensorimotor neuropathy [Not Recovered/Not Resolved]
  - Polymyositis [Not Recovered/Not Resolved]
  - Dysphagia [Not Recovered/Not Resolved]
  - Dermatomyositis [Unknown]

NARRATIVE: CASE EVENT DATE: 20170206
